FAERS Safety Report 6554468-5 (Version None)
Quarter: 2010Q1

REPORT INFORMATION
  Report Type: 
  Country: None (occurrence: None)
  Receive Date: 20100125
  Receipt Date: 20100125
  Transmission Date: 20100710
  Serious: Yes (Other)
  Sender: FDA-Public Use
  Company Number: None

PATIENT
  Age: 52 Year
  Sex: Female
  Weight: 100.6985 kg

DRUGS (2)
  1. LEVAQUIN [Suspect]
     Indication: BRONCHITIS
     Dosage: ONE PILL DAILY PO
     Route: 048
     Dates: start: 20100119, end: 20100121
  2. LEVAQUIN [Suspect]
     Indication: UPPER RESPIRATORY TRACT INFECTION
     Dosage: ONE PILL DAILY PO
     Route: 048
     Dates: start: 20100119, end: 20100121

REACTIONS (10)
  - ABDOMINAL PAIN UPPER [None]
  - HYPERHIDROSIS [None]
  - INFLAMMATION [None]
  - MUSCLE SPASMS [None]
  - MYALGIA [None]
  - NAUSEA [None]
  - PAIN IN EXTREMITY [None]
  - SLEEP DISORDER [None]
  - THINKING ABNORMAL [None]
  - TREMOR [None]
